FAERS Safety Report 4462374-5 (Version None)
Quarter: 2004Q3

REPORT INFORMATION
  Report Type: 
  Country: None (occurrence: None)
  Receive Date: 20040923
  Receipt Date: 20040913
  Transmission Date: 20050211
  Serious: Yes (Other)
  Sender: FDA-Public Use
  Company Number: 6010541

PATIENT
  Age: 63 Year
  Sex: Female

DRUGS (2)
  1. CARDICOR        (BISOPROLOL FUMARATE) [Suspect]
     Indication: ESSENTIAL HYPERTENSION
     Dosage: 2,5 MG ORAL
     Route: 048
     Dates: start: 20040406, end: 20040715
  2. MICARDIS HCT [Suspect]
     Dosage: 30 MG ORAL
     Route: 048
     Dates: start: 20031118, end: 20040715

REACTIONS (2)
  - PIGMENTATION DISORDER [None]
  - RASH [None]
